FAERS Safety Report 7532149-9 (Version None)
Quarter: 2011Q2

REPORT INFORMATION
  Report Type: 
  Country: None (occurrence: None)
  Receive Date: 20110608
  Receipt Date: 20110603
  Transmission Date: 20111010
  Serious: No
  Sender: FDA-Public Use
  Company Number: US-PFIZER INC-2011005740

PATIENT
  Sex: Female
  Weight: 57.596 kg

DRUGS (4)
  1. SYNTHROID [Concomitant]
     Dosage: UNK
  2. PREMARIN [Suspect]
     Dosage: 1.25 MG, DAILY
     Route: 048
     Dates: start: 19980101
  3. SYNTHROID [Concomitant]
     Dosage: 100 UG, UNK
     Route: 048
  4. PREMARIN [Suspect]
     Indication: HORMONE REPLACEMENT THERAPY
     Dosage: 0.625 MG, 1X/DAY
     Route: 048
     Dates: start: 19830101

REACTIONS (2)
  - DRUG INEFFECTIVE [None]
  - RASH [None]
